FAERS Safety Report 4284848-2 (Version None)
Quarter: 2004Q1

REPORT INFORMATION
  Report Type: 
  Country: None (occurrence: None)
  Receive Date: 20040203
  Receipt Date: 20040203
  Transmission Date: 20041129
  Serious: Yes (Hospitalization)
  Sender: FDA-Public Use
  Company Number: None

PATIENT
  Age: 80 Year
  Sex: Male
  Weight: 63.5036 kg

DRUGS (2)
  1. KAOPECTATE ^EXTRA STRENGTH^ [Suspect]
     Indication: DIARRHOEA
     Dosage: 4X DAY ORAL
     Route: 048
     Dates: start: 20040103, end: 20040106
  2. CLINDOMYCIN [Concomitant]

REACTIONS (1)
  - FAECES DISCOLOURED [None]
